FAERS Safety Report 4534782-5 (Version None)
Quarter: 2004Q4

REPORT INFORMATION
  Report Type: 
  Country: None (occurrence: None)
  Receive Date: 20041222
  Receipt Date: 20040227
  Transmission Date: 20050328
  Serious: No
  Sender: FDA-Public Use
  Company Number: US-BRISTOL-MYERS SQUIBB COMPANY-12524120

PATIENT
  Age: 57 Year
  Sex: Male

DRUGS (5)
  1. PRAVACHOL [Suspect]
     Indication: BLOOD CHOLESTEROL INCREASED
     Route: 048
     Dates: start: 20040207
  2. ALTACE [Concomitant]
  3. HUMALOG [Concomitant]
  4. LANTUS [Concomitant]
  5. GLUCOSAMINE [Concomitant]

REACTIONS (1)
  - BLOOD GLUCOSE INCREASED [None]
